FAERS Safety Report 4774978-0 (Version None)
Quarter: 2005Q3

REPORT INFORMATION
  Report Type: 
  Country: None (occurrence: None)
  Receive Date: 20050920
  Receipt Date: 20050916
  Transmission Date: 20060218
  Serious: Yes (Other)
  Sender: FDA-Public Use
  Company Number: 200510436BNE

PATIENT
  Age: 80 Year
  Sex: Male

DRUGS (2)
  1. CIPROFLOXACIN [Suspect]
     Indication: URINARY TRACT INFECTION
  2. TRIMETHOPRIM [Concomitant]

REACTIONS (3)
  - DIVERTICULITIS [None]
  - NEOPLASM MALIGNANT [None]
  - URINE ANALYSIS ABNORMAL [None]
